FAERS Safety Report 8393169-8 (Version None)
Quarter: 2012Q2

REPORT INFORMATION
  Report Type: 
  Country: None (occurrence: None)
  Receive Date: 20120529
  Receipt Date: 20120523
  Transmission Date: 20120825
  Serious: Yes (Hospitalization)
  Sender: FDA-Public Use
  Company Number: US-GILEAD-2012-0055529

PATIENT
  Sex: Female

DRUGS (2)
  1. ADCIRCA [Concomitant]
  2. LETAIRIS [Suspect]
     Indication: PRODUCT USED FOR UNKNOWN INDICATION
     Dosage: 10 MG, UNK
     Route: 048
     Dates: start: 20080916

REACTIONS (1)
  - PERIPHERAL ISCHAEMIA [None]
